FAERS Safety Report 7334361-0 (Version None)
Quarter: 2011Q1

REPORT INFORMATION
  Report Type: 
  Country: None (occurrence: None)
  Receive Date: 20110307
  Receipt Date: 20101119
  Transmission Date: 20110831
  Serious: No
  Sender: FDA-Public Use
  Company Number: US-KINGPHARMUSA00001-K201001420

PATIENT
  Age: 51 Year
  Sex: Male

DRUGS (6)
  1. ACTIQ [Concomitant]
     Indication: BREAKTHROUGH PAIN
     Dosage: 400 MCG, PRN, ONE TO TWO DAILY
     Route: 048
  2. CYMBALTA [Concomitant]
  3. EMBEDA [Suspect]
     Indication: NECK PAIN
  4. OXYCODONE [Concomitant]
     Indication: BREAKTHROUGH PAIN
     Dosage: 5 MG, UNK
  5. CELEBREX [Concomitant]
  6. EMBEDA [Suspect]
     Indication: BACK PAIN
     Dosage: 100 MG, BID
     Route: 048
     Dates: start: 20101101

REACTIONS (1)
  - DRUG INEFFECTIVE [None]
